FAERS Safety Report 12939844 (Version 1)
Quarter: 2016Q4

REPORT INFORMATION
  Report Type: Other
  Country: US (occurrence: US)
  Receive Date: 20161115
  Receipt Date: 20161115
  Transmission Date: 20170207
  Serious: Yes (Other)
  Sender: FDA-Public Use
  Company Number: US-SHIRE-US201616297

PATIENT
  Age: 86 Year
  Sex: Female
  Weight: 63.99 kg

DRUGS (2)
  1. GATTEX [Suspect]
     Active Substance: TEDUGLUTIDE\WATER
     Indication: SHORT-BOWEL SYNDROME
     Dosage: 0.32 ML, 1X/DAY:QD
     Route: 058
     Dates: start: 20160922
  2. GATTEX [Suspect]
     Active Substance: TEDUGLUTIDE\WATER
     Dosage: 0.32 ML, 1X/DAY:QD
     Route: 058
     Dates: start: 201610, end: 20161028

REACTIONS (3)
  - Therapy cessation [Unknown]
  - Abdominal distension [Unknown]
  - Obstruction [Unknown]

NARRATIVE: CASE EVENT DATE: 201609
